FAERS Safety Report 5165042-X (Version None)
Quarter: 2006Q4

REPORT INFORMATION
  Report Type: 
  Country: None (occurrence: None)
  Receive Date: 20061124
  Receipt Date: 20061113
  Transmission Date: 20070319
  Serious: Yes (Hospitalization)
  Sender: FDA-Public Use
  Company Number: 2006114529

PATIENT
  Age: 70 Year
  Sex: Female

DRUGS (5)
  1. LYRICA [Suspect]
     Indication: PAIN
     Dosage: 150 MG (150 MG, 1 IN 1 D), ORAL
     Route: 048
     Dates: start: 20060909, end: 20060915
  2. ETORICOXIB (ETORICOXIB) [Suspect]
     Indication: PAIN
     Dosage: 60 MG (60 MG, 1 IN 1 D), ORAL
     Route: 048
     Dates: start: 20060909, end: 20060915
  3. ACEQUIN (QUINAPRIL HYDROCHLORIDE) [Concomitant]
  4. ASPIRIN [Concomitant]
  5. SOLOSA (GLIMEPIRIDE) [Concomitant]

REACTIONS (4)
  - ALANINE AMINOTRANSFERASE INCREASED [None]
  - ASPARTATE AMINOTRANSFERASE INCREASED [None]
  - FLUSHING [None]
  - OEDEMA [None]
